FAERS Safety Report 9700146 (Version 1)
Quarter: 2013Q4

REPORT INFORMATION
  Report Type: Spontaneous
  Country: US (occurrence: None)
  Receive Date: 20131107
  Receipt Date: 20131107
  Transmission Date: 20140711
  Serious: Yes (Hospitalization)
  Sender: FDA-Public Use
  Company Number: 2013038762

PATIENT
  Age: 56 Year
  Sex: Female
  Weight: 91.17 kg

DRUGS (21)
  1. ZEMAIRA (ALPHA-1 PROTEINASE INHIBITOR (HUMAN)) [Suspect]
     Indication: ALPHA-1 ANTI-TRYPSIN DEFICIENCY
     Route: 042
     Dates: start: 20130820
  2. DIPHENHYDRAMINE (DIPHENHYDRAMINE) [Concomitant]
  3. HEPARIN (HEPARIN) [Concomitant]
  4. SODIUM CHLORIDE [Concomitant]
  5. EPI-PEN (EPINEPHRINE HYDROCHLORIDE) [Concomitant]
  6. LMX (LIDOCAINE) [Concomitant]
  7. STERILE WATER (WATER) [Concomitant]
  8. CATHFLO ACTIVASE (ALTEPLASE) [Concomitant]
  9. ADVAIR (SERETIDE) [Concomitant]
  10. PANTOPRAZOLE (PANTOPRAZOLE) [Concomitant]
  11. LASIX (FUROSEMIDE) [Concomitant]
  12. DEXAMETHAZONE (DEXAMETHAZONE-PIX) [Concomitant]
  13. POTASSIUM CHLORIDE ER (POTASSIUM CHLORIDE) [Concomitant]
  14. CLONAZEPAM (CLONAZEPAM) [Concomitant]
  15. SUCRALFATE (SUCRALFATE) [Concomitant]
  16. FLUCONAZOLE (FLUCONAZOLE) [Concomitant]
  17. ZOFRAN (ONDANSETRON) [Concomitant]
  18. IBUPROFEN (IBUPROFEN) [Concomitant]
  19. SPIRIVA (TIOTROPIUM BROMIDE) [Concomitant]
  20. ATIVAN (LORAZEPAM) [Concomitant]
  21. NEULASTA (PEGFILGRASTIM) [Concomitant]

REACTIONS (1)
  - Pneumonia [None]
